FAERS Safety Report 24916264 (Version 1)
Quarter: 2025Q1

REPORT INFORMATION
  Report Type: Report from Study
  Country: CA (occurrence: CA)
  Receive Date: 20250203
  Receipt Date: 20250203
  Transmission Date: 20250409
  Serious: Yes (Other)
  Sender: ABBVIE
  Company Number: CA-ABBVIE-6112074

PATIENT
  Age: 68 Year
  Sex: Female

DRUGS (1)
  1. HUMIRA [Suspect]
     Active Substance: ADALIMUMAB
     Indication: Crohn^s disease
     Route: 058
     Dates: start: 20150720

REACTIONS (9)
  - Squamous cell carcinoma of skin [Unknown]
  - Procedural pain [Unknown]
  - Squamous cell carcinoma of skin [Unknown]
  - General symptom [Unknown]
  - Swelling [Unknown]
  - Purulence [Unknown]
  - Oedema [Unknown]
  - Mass [Unknown]
  - Suture removal [Unknown]

NARRATIVE: CASE EVENT DATE: 20241001
